FAERS Safety Report 24023969 (Version 1)
Quarter: 2024Q2

REPORT INFORMATION
  Report Type: Report from Study
  Country: IT (occurrence: IT)
  Receive Date: 20240627
  Receipt Date: 20240627
  Transmission Date: 20240715
  Serious: No
  Sender: FDA-Public Use
  Company Number: None

PATIENT
  Age: 81 Year
  Sex: Female

DRUGS (1)
  1. PHESGO [Suspect]
     Active Substance: HYALURONIDASE-ZZXF\PERTUZUMAB\TRASTUZUMAB
     Indication: Breast cancer
     Dosage: 600/600 MG EVERY 21 DAYS
     Route: 065
     Dates: start: 20231116, end: 20231116

REACTIONS (2)
  - Hypotension [Recovered/Resolved]
  - Cancer fatigue [Recovered/Resolved]

NARRATIVE: CASE EVENT DATE: 20231117
